FAERS Safety Report 7352103-X (Version None)
Quarter: 2011Q1

REPORT INFORMATION
  Report Type: 
  Country: None (occurrence: None)
  Receive Date: 20110315
  Receipt Date: 20110307
  Transmission Date: 20110831
  Serious: Yes (Other)
  Sender: FDA-Public Use
  Company Number: US-ELI_LILLY_AND_COMPANY-US201103002429

PATIENT
  Sex: Female
  Weight: 94.785 kg

DRUGS (6)
  1. TRANXENE [Concomitant]
     Indication: NERVOUSNESS
     Dosage: UNK, AS NEEDED
     Route: 048
  2. BYETTA [Suspect]
     Indication: TYPE 2 DIABETES MELLITUS
     Dosage: 10 UG, 2/D
     Route: 058
  3. LEVEMIR [Concomitant]
     Indication: TYPE 2 DIABETES MELLITUS
     Dosage: UNK, 3/D
     Route: 058
  4. METFORMIN [Concomitant]
     Indication: TYPE 2 DIABETES MELLITUS
     Dosage: UNK, EACH EVENING
     Route: 048
  5. NOVOLOG [Concomitant]
     Indication: TYPE 2 DIABETES MELLITUS
     Dosage: UNK, AS NEEDED
     Route: 058
  6. AMARYL [Concomitant]
     Indication: TYPE 2 DIABETES MELLITUS
     Dosage: UNK, 2/D
     Route: 048

REACTIONS (10)
  - HYPOGLYCAEMIC UNCONSCIOUSNESS [None]
  - NERVOUSNESS [None]
  - BLOOD GLUCOSE DECREASED [None]
  - SOMNOLENCE [None]
  - FEELING ABNORMAL [None]
  - WEIGHT INCREASED [None]
  - EARLY SATIETY [None]
  - OFF LABEL USE [None]
  - SELF-INJURIOUS IDEATION [None]
  - ABDOMINAL DISTENSION [None]
